FAERS Safety Report 4427229-0 (Version None)
Quarter: 2004Q3

REPORT INFORMATION
  Report Type: 
  Country: None (occurrence: None)
  Receive Date: 20040817
  Receipt Date: 20040805
  Transmission Date: 20050211
  Serious: Yes (Other)
  Sender: FDA-Public Use
  Company Number: US-JNJFOC-20040803679

PATIENT
  Age: 48 Year

DRUGS (5)
  1. INFLIXIMAB [Suspect]
     Indication: CROHN'S DISEASE
     Dosage: RECEIVED 0,2 AND 6 WEEK INDUCTION AND EVERY 8 WEEK DOSING FOR 7 INFUSIONS.
     Route: 042
  2. PREDNISONE [Concomitant]
  3. AZATHIOPRINE [Concomitant]
  4. DIPHENHYDRAMINE [Concomitant]
     Indication: PREMEDICATION
  5. ACETAMINOPHEN [Concomitant]
     Indication: PREMEDICATION

REACTIONS (1)
  - LUPUS-LIKE SYNDROME [None]
